FAERS Safety Report 6921662-0 (Version None)
Quarter: 2010Q3

REPORT INFORMATION
  Report Type: 
  Country: None (occurrence: None)
  Receive Date: 20100812
  Receipt Date: 20100803
  Transmission Date: 20110219
  Serious: Yes (Other)
  Sender: FDA-Public Use
  Company Number: SI-PFIZER INC-2010082082

PATIENT
  Age: 65 Year
  Sex: Male
  Weight: 70 kg

DRUGS (1)
  1. SUNITINIB MALATE [Suspect]
     Dosage: 50 MG, 1X/DAY
     Route: 048
     Dates: start: 20100510

REACTIONS (7)
  - AGGRESSION [None]
  - FEELING ABNORMAL [None]
  - HYPOACUSIS [None]
  - IRRITABILITY [None]
  - MEMORY IMPAIRMENT [None]
  - NAUSEA [None]
  - VOMITING [None]
